FAERS Safety Report 8994763 (Version 2)
Quarter: 2013Q1

REPORT INFORMATION
  Report Type: Spontaneous
  Country: US (occurrence: None)
  Receive Date: 20121221
  Receipt Date: 20130215
  Transmission Date: 20140127
  Serious: Yes (Hospitalization)
  Sender: FDA-Public Use
  Company Number: DKLU1087200

PATIENT
  Sex: Male

DRUGS (3)
  1. SABRIL (FOR ORAL SOLUTION) (SABRIL) (VIGABATRIN) (POWDER FOR ORAL SOLUTION) [Suspect]
     Indication: PRODUCT USED FOR UNKNOWN INDICATION
     Route: 048
  2. ONFI (CLOBAZAM) [Suspect]
  3. TOPAMAX (TOPIRAMATE) [Suspect]

REACTIONS (3)
  - Malaise [None]
  - Convulsion [None]
  - Drug ineffective [None]
